FAERS Safety Report 17271997 (Version 2)
Quarter: 2020Q1

REPORT INFORMATION
  Report Type: Spontaneous
  Country: US (occurrence: US)
  Receive Date: 20200115
  Receipt Date: 20200219
  Transmission Date: 20200409
  Serious: Yes (Other)
  Sender: FDA-Public Use
  Company Number: US-PFIZER INC-2018052321

PATIENT
  Age: 56 Year
  Sex: Female
  Weight: 67.5 kg

DRUGS (2)
  1. LYRICA [Suspect]
     Active Substance: PREGABALIN
     Dosage: 900 MG, DAILY (300 MG CAPSULE THREE TIMES A DAY BY MOUTH)
     Route: 048
  2. LYRICA [Suspect]
     Active Substance: PREGABALIN
     Indication: NERVE INJURY
     Dosage: 900 MG, DAILY (QTY 90/DAY SUPPLY 30/QTY 30/ DAY SUPPLY 10)

REACTIONS (3)
  - Leukaemia [Unknown]
  - Prescribed overdose [Unknown]
  - Weight increased [Unknown]

NARRATIVE: CASE EVENT DATE: 201801
